FAERS Safety Report 9536260 (Version 1)
Quarter: 2013Q3

REPORT INFORMATION
  Report Type: Spontaneous
  Country: US (occurrence: None)
  Receive Date: 20130917
  Receipt Date: 20130917
  Transmission Date: 20140515
  Serious: Yes (Other)
  Sender: FDA-Public Use
  Company Number: None

PATIENT
  Age: 63 Year
  Sex: Male
  Weight: 90.72 kg

DRUGS (7)
  1. MYRBETRIQ [Suspect]
     Indication: HYPERTONIC BLADDER
     Dosage: 50 MG ONCE A DAY BY MOUTH
     Route: 048
     Dates: start: 20130807, end: 20130811
  2. SIMVASTATIN [Concomitant]
  3. VITAMIN D [Concomitant]
  4. VITAMIN E [Concomitant]
  5. FISH OIL [Concomitant]
  6. CALCIUM CITRATE [Concomitant]
  7. MAG OX [Concomitant]

REACTIONS (4)
  - Rash [None]
  - Swelling face [None]
  - Rash [None]
  - Rash [None]
